FAERS Safety Report 24685762 (Version 6)
Quarter: 2025Q2

REPORT INFORMATION
  Report Type: Spontaneous
  Country: US (occurrence: US)
  Receive Date: 20241202
  Receipt Date: 20250528
  Transmission Date: 20250716
  Serious: Yes (Hospitalization)
  Sender: PFIZER
  Company Number: US-PFIZER INC-PV202400143296

PATIENT
  Age: 71 Year
  Sex: Female

DRUGS (2)
  1. TUKYSA [Suspect]
     Active Substance: TUCATINIB
     Dosage: TWO TABLETS TWICE A DAY/150MG 2 TABS PO (PER ORAL) BID (TWICE DAILY)/ 300 MG TWICE DAILY
     Route: 048
  2. OMEPRAZOLE [Concomitant]
     Active Substance: OMEPRAZOLE

REACTIONS (5)
  - Dehydration [Unknown]
  - Fatigue [Unknown]
  - Fungal infection [Unknown]
  - Cellulitis [Unknown]
  - Diarrhoea [Unknown]
